FAERS Safety Report 17516292 (Version 4)
Quarter: 2022Q1

REPORT INFORMATION
  Report Type: Spontaneous
  Country: ES (occurrence: ES)
  Receive Date: 20200309
  Receipt Date: 20220103
  Transmission Date: 20220423
  Serious: Yes (Other)
  Sender: FDA-Public Use
  Company Number: ES-MYLANLABS-2020M1020809

PATIENT
  Age: 54 Year
  Sex: Female

DRUGS (2)
  1. GEFITINIB [Suspect]
     Active Substance: GEFITINIB
     Indication: Lung adenocarcinoma
     Route: 065
  2. GILOTRIF [Suspect]
     Active Substance: AFATINIB
     Indication: Lung adenocarcinoma
     Route: 065

REACTIONS (2)
  - Drug resistance [Unknown]
  - Malignant neoplasm progression [Unknown]
